FAERS Safety Report 21087209 (Version 1)
Quarter: 2022Q3

REPORT INFORMATION
  Report Type: Spontaneous
  Country: SE (occurrence: SE)
  Receive Date: 20220715
  Receipt Date: 20220715
  Transmission Date: 20221027
  Serious: Yes (Other)
  Sender: FDA-Public Use
  Company Number: SE-MYLANLABS-2022M1078755

PATIENT
  Age: 6 Decade
  Sex: Male

DRUGS (2)
  1. AZITHROMYCIN [Suspect]
     Active Substance: AZITHROMYCIN
     Indication: Gonococcal infection
     Dosage: 1.5 GRAM (SINGLE DOSE)
     Route: 048
  2. CEFTRIAXONE [Suspect]
     Active Substance: CEFTRIAXONE
     Indication: Gonococcal infection
     Dosage: 1 GRAM
     Route: 030

REACTIONS (2)
  - Pathogen resistance [Unknown]
  - Treatment failure [Unknown]
